FAERS Safety Report 10501547 (Version 1)
Quarter: 2014Q4

REPORT INFORMATION
  Report Type: Spontaneous
  Country: US (occurrence: None)
  Receive Date: 20141006
  Receipt Date: 20141006
  Transmission Date: 20150528
  Serious: No
  Sender: FDA-Public Use
  Company Number: None

PATIENT
  Age: 56 Year
  Sex: Female
  Weight: 68 kg

DRUGS (3)
  1. DIAZEPAM. [Suspect]
     Active Substance: DIAZEPAM
     Indication: AGORAPHOBIA
     Dosage: 3 PILLS THREE TIMES DAILY TAKEN BY MOUTH
     Route: 048
     Dates: start: 19781005, end: 20141003
  2. DIAZEPAM. [Suspect]
     Active Substance: DIAZEPAM
     Indication: ANXIETY
     Dosage: 3 PILLS THREE TIMES DAILY TAKEN BY MOUTH
     Route: 048
     Dates: start: 19781005, end: 20141003
  3. DIAZEPAM. [Suspect]
     Active Substance: DIAZEPAM
     Indication: PANIC ATTACK
     Dosage: 3 PILLS THREE TIMES DAILY TAKEN BY MOUTH
     Route: 048
     Dates: start: 19781005, end: 20141003

REACTIONS (1)
  - Drug dependence [None]

NARRATIVE: CASE EVENT DATE: 20141003
